FAERS Safety Report 13020668 (Version 1)
Quarter: 2016Q4

REPORT INFORMATION
  Report Type: Spontaneous
  Country: US (occurrence: US)
  Receive Date: 20161212
  Receipt Date: 20161212
  Transmission Date: 20170207
  Serious: Yes (Other)
  Sender: FDA-Public Use
  Company Number: US-CELGENEUS-USA-2016122571

PATIENT
  Age: 71 Year
  Sex: Female
  Weight: 77.18 kg

DRUGS (6)
  1. REVLIMID [Suspect]
     Active Substance: LENALIDOMIDE
     Indication: PLASMA CELL MYELOMA
     Dosage: 10MG
     Route: 048
     Dates: start: 20160121
  2. DEXAMETHASONE. [Suspect]
     Active Substance: DEXAMETHASONE
     Indication: CONJUNCTIVAL DISORDER
     Dosage: 4MG
     Route: 048
     Dates: start: 20160114
  3. ASPIRIN LOW DOSE [Concomitant]
     Active Substance: ASPIRIN
     Indication: PROPHYLAXIS
     Dosage: 81MG
     Route: 048
     Dates: start: 20160114
  4. LISINOPRIL. [Concomitant]
     Active Substance: LISINOPRIL
     Indication: HYPERTENSION
     Dosage: 5MG
     Route: 048
     Dates: start: 20160119
  5. METOPROLOL SUCCINATE ER [Concomitant]
     Active Substance: METOPROLOL SUCCINATE
     Indication: HYPERTENSION
     Dosage: 25MG
     Route: 048
     Dates: start: 20160114
  6. AMIODARONE HCL [Concomitant]
     Active Substance: AMIODARONE HYDROCHLORIDE
     Indication: PRODUCT USED FOR UNKNOWN INDICATION
     Dosage: 200MG
     Route: 048
     Dates: start: 20160119

REACTIONS (1)
  - Upper respiratory tract infection [Unknown]

NARRATIVE: CASE EVENT DATE: 20161201
